FAERS Safety Report 19194430 (Version 4)
Quarter: 2021Q2

REPORT INFORMATION
  Report Type: Spontaneous
  Country: US (occurrence: US)
  Receive Date: 20210429
  Receipt Date: 20210608
  Transmission Date: 20210717
  Serious: Yes (Hospitalization)
  Sender: FDA-Public Use
  Company Number: US-PFIZER INC-2021446636

PATIENT
  Age: 33 Year
  Sex: Male
  Weight: 108.86 kg

DRUGS (4)
  1. SEROQUEL [Concomitant]
     Active Substance: QUETIAPINE FUMARATE
     Indication: BIPOLAR I DISORDER
     Dosage: 100 MG
  2. LITHIUM CARBONATE. [Concomitant]
     Active Substance: LITHIUM CARBONATE
     Indication: BIPOLAR I DISORDER
     Dosage: 1350 MG, DAILY
     Dates: start: 202004
  3. ALPRAZOLAM. [Suspect]
     Active Substance: ALPRAZOLAM
     Indication: BIPOLAR I DISORDER
     Dosage: 3 MG, AS NEEDED (ONE TO THREE TABLETS DAILY BY MOUTH AS NEEDED DAILY)
     Route: 048
     Dates: start: 202004
  4. SEROQUEL [Concomitant]
     Active Substance: QUETIAPINE FUMARATE
     Indication: SLEEP DISORDER
     Dosage: 400 MG, 1X/DAY [NIGHTLY]
     Dates: start: 202004

REACTIONS (1)
  - Psychotic disorder [Recovered/Resolved with Sequelae]

NARRATIVE: CASE EVENT DATE: 20210312
